FAERS Safety Report 26102826 (Version 2)
Quarter: 2025Q4

REPORT INFORMATION
  Report Type: Spontaneous
  Country: US (occurrence: US)
  Receive Date: 20251128
  Receipt Date: 20251202
  Transmission Date: 20260118
  Serious: No
  Sender: APELLIS PHARMACEUTICALS
  Company Number: US-APELLIS-2025-APL-0002282

PATIENT

DRUGS (2)
  1. EMPAVELI [Suspect]
     Active Substance: PEGCETACOPLAN
     Indication: Product used for unknown indication
  2. EMPAVELI [Suspect]
     Active Substance: PEGCETACOPLAN
     Dosage: DOSE:  ?FREQUENCY:  ?ROUTE:

REACTIONS (5)
  - Photophobia [Unknown]
  - Renal disorder [Unknown]
  - Pyrexia [Unknown]
  - Cold sweat [Unknown]
  - Arthralgia [Unknown]
